FAERS Safety Report 12256764 (Version 1)
Quarter: 2016Q2

REPORT INFORMATION
  Report Type: Spontaneous
  Country: None (occurrence: None)
  Receive Date: 20160411
  Receipt Date: 20160411
  Transmission Date: 20160815
  Serious: Yes (Other)
  Sender: FDA-Public Use
  Company Number: None

PATIENT
  Age: 65 Year
  Sex: Female
  Weight: 68.95 kg

DRUGS (4)
  1. COREG [Suspect]
     Active Substance: CARVEDILOL
     Indication: CORONARY ARTERY DISEASE
     Dosage: 30 CAPSULES ONCE A DAY
     Route: 048
  2. HIBISCUS FLOWER TEA [Concomitant]
  3. TEA [Concomitant]
     Active Substance: TEA LEAF
  4. COREG [Suspect]
     Active Substance: CARVEDILOL
     Indication: HYPERTENSION
     Dosage: 30 CAPSULES ONCE A DAY
     Route: 048

REACTIONS (11)
  - Loose tooth [None]
  - Overdose [None]
  - Blood pressure increased [None]
  - Dry eye [None]
  - Fatigue [None]
  - Disturbance in attention [None]
  - Peripheral swelling [None]
  - Cough [None]
  - Inappropriate schedule of drug administration [None]
  - Insomnia [None]
  - Dry mouth [None]

NARRATIVE: CASE EVENT DATE: 20160301
